FAERS Safety Report 9471247 (Version 1)
Quarter: 2013Q3

REPORT INFORMATION
  Report Type: Spontaneous
  Country: US (occurrence: US)
  Receive Date: 20130822
  Receipt Date: 20130822
  Transmission Date: 20140515
  Serious: Yes (Death, Other)
  Sender: FDA-Public Use
  Company Number: US-BRISTOL-MYERS SQUIBB COMPANY-19199843

PATIENT
  Age: 79 Year
  Sex: Male

DRUGS (3)
  1. ELIQUIS [Suspect]
  2. COUMADIN [Suspect]
  3. CELEBREX [Suspect]

REACTIONS (2)
  - Gastrointestinal haemorrhage [Fatal]
  - Metastases to liver [Not Recovered/Not Resolved]
